FAERS Safety Report 6887393-0 (Version None)
Quarter: 2010Q3

REPORT INFORMATION
  Report Type: 
  Country: None (occurrence: None)
  Receive Date: 20100730
  Receipt Date: 20100311
  Transmission Date: 20110219
  Serious: No
  Sender: FDA-Public Use
  Company Number: A0840567A

PATIENT
  Sex: Female
  Weight: 86.4 kg

DRUGS (8)
  1. SUMATRIPTAN SUCCINATE [Suspect]
     Indication: MIGRAINE
     Dosage: 50MG AS DIRECTED
     Route: 048
     Dates: start: 20090101
  2. CYMBALTA [Concomitant]
     Indication: DEPRESSION
     Dosage: 60MG TWICE PER DAY
     Dates: start: 20060101
  3. LEXAPRO [Concomitant]
     Dosage: 20MGD PER DAY
  4. PREMPRO [Concomitant]
     Indication: HORMONE REPLACEMENT THERAPY
     Dates: start: 19950101
  5. BENICAR [Concomitant]
     Dosage: 40MGD PER DAY
     Dates: start: 20090101
  6. NORVASC [Concomitant]
     Dates: start: 20090101
  7. WATER PILL [Concomitant]
     Dates: start: 20090101
  8. XANAX [Concomitant]

REACTIONS (2)
  - PRODUCT QUALITY ISSUE [None]
  - THERAPEUTIC RESPONSE DECREASED [None]
